FAERS Safety Report 6913664-5 (Version None)
Quarter: 2010Q3

REPORT INFORMATION
  Report Type: 
  Country: None (occurrence: None)
  Receive Date: 20100809
  Receipt Date: 20100729
  Transmission Date: 20110219
  Serious: Yes (Hospitalization)
  Sender: FDA-Public Use
  Company Number: US-ENDO PHARMACEUTICALS INC.-OPER20100136

PATIENT
  Age: 57 Year
  Sex: Female

DRUGS (2)
  1. OPANA ER [Suspect]
     Indication: PAIN
     Dosage: UNK
  2. LORTAB [Suspect]
     Indication: PAIN
     Dosage: UNK

REACTIONS (3)
  - DRUG INEFFECTIVE [None]
  - OVERDOSE [None]
  - UNRESPONSIVE TO STIMULI [None]
